FAERS Safety Report 24837564 (Version 1)
Quarter: 2025Q1

REPORT INFORMATION
  Report Type: Spontaneous
  Country: JP (occurrence: JP)
  Receive Date: 20250113
  Receipt Date: 20250113
  Transmission Date: 20250408
  Serious: Yes (Other)
  Sender: ABBVIE
  Company Number: JP-ABBVIE-6081287

PATIENT
  Age: 3 Year
  Sex: Female

DRUGS (2)
  1. SEVOFLURANE [Suspect]
     Active Substance: SEVOFLURANE
     Indication: General anaesthesia
     Route: 055
  2. REMIFENTANIL [Suspect]
     Active Substance: REMIFENTANIL
     Indication: General anaesthesia
     Route: 042

REACTIONS (3)
  - Delayed recovery from anaesthesia [Unknown]
  - Extubation [Unknown]
  - Hypoxia [Unknown]
